FAERS Safety Report 7183697-5 (Version None)
Quarter: 2010Q4

REPORT INFORMATION
  Report Type: 
  Country: None (occurrence: None)
  Receive Date: 20101220
  Receipt Date: 20101220
  Transmission Date: 20110411
  Serious: Yes (Hospitalization)
  Sender: FDA-Public Use
  Company Number: None

PATIENT
  Age: 68 Year
  Sex: Female
  Weight: 100 kg

DRUGS (26)
  1. MS CONTIN [Suspect]
     Indication: PAIN
     Dosage: 15 MG BID PO RECENT
     Route: 048
  2. PERCOCET [Suspect]
     Indication: PAIN
     Dosage: 5/325 1-2 Q 4H PRN PO RECENT
     Route: 048
  3. MAG OX [Concomitant]
  4. NEURONTIN [Concomitant]
  5. VALTREX [Concomitant]
  6. CYCLOSPORINE [Concomitant]
  7. CELLCEPT [Concomitant]
  8. SPIRIVA [Concomitant]
  9. LACTULOSE [Concomitant]
  10. PYROXIDINE [Concomitant]
  11. LEVOXYL [Concomitant]
  12. ALBUTEROL [Concomitant]
  13. PROTONIX [Concomitant]
  14. MAALOX [Concomitant]
  15. SYMBICORT [Concomitant]
  16. PREDNISONE [Concomitant]
  17. ALLOPURINOL [Concomitant]
  18. CALCITRIOL [Concomitant]
  19. ASA [Concomitant]
  20. OSCAL [Concomitant]
  21. CARDIZEM CD [Concomitant]
  22. LASIX [Concomitant]
  23. COLACE [Concomitant]
  24. DULCOLAX [Concomitant]
  25. SEPTRA [Concomitant]
  26. M.V.I. [Concomitant]

REACTIONS (3)
  - INTENTIONAL DRUG MISUSE [None]
  - MENTAL STATUS CHANGES [None]
  - RESPIRATORY FAILURE [None]
